FAERS Safety Report 4830446-9 (Version None)
Quarter: 2005Q4

REPORT INFORMATION
  Report Type: 
  Country: None (occurrence: None)
  Receive Date: 20051117
  Receipt Date: 20051021
  Transmission Date: 20060501
  Serious: Yes (Other)
  Sender: FDA-Public Use
  Company Number: FI-ROCHE-421943

PATIENT
  Age: 31 Year
  Sex: Female

DRUGS (2)
  1. RIBAVIRIN [Suspect]
     Route: 048
     Dates: start: 20041109, end: 20050426
  2. PEG-INTERFERON ALFA 2A (RO 25-8310) [Suspect]
     Dosage: 180 MCG PER WEEK.
     Route: 058
     Dates: start: 20041109, end: 20050426

REACTIONS (3)
  - ABORTION SPONTANEOUS [None]
  - DRUG EXPOSURE BEFORE PREGNANCY [None]
  - PREGNANCY WITH CONTRACEPTIVE DEVICE [None]
